FAERS Safety Report 7025247-X (Version None)
Quarter: 2010Q4

REPORT INFORMATION
  Report Type: 
  Country: None (occurrence: None)
  Receive Date: 20101001
  Receipt Date: 20100925
  Transmission Date: 20110411
  Serious: Yes (Other)
  Sender: FDA-Public Use
  Company Number: SI-ABBOTT-10P-261-0669807-00

PATIENT
  Sex: Female
  Weight: 70 kg

DRUGS (1)
  1. TARKA [Suspect]
     Indication: HYPERTENSION
     Dosage: 180MG/2MG
     Dates: start: 20090609, end: 20100909

REACTIONS (1)
  - NON-HODGKIN'S LYMPHOMA [None]
